FAERS Safety Report 20611288 (Version 1)
Quarter: 2022Q1

REPORT INFORMATION
  Report Type: Spontaneous
  Country: CN (occurrence: CN)
  Receive Date: 20220318
  Receipt Date: 20220318
  Transmission Date: 20220423
  Serious: Yes (Hospitalization)
  Sender: FDA-Public Use
  Company Number: CN-BAYER-2022A039194

PATIENT
  Age: 76 Year
  Sex: Female

DRUGS (2)
  1. GLUCOBAY [Suspect]
     Active Substance: ACARBOSE
     Indication: Type 2 diabetes mellitus
     Dosage: 50 MG, TID
     Route: 048
     Dates: start: 2011, end: 20211026
  2. AMLODIPINE BESYLATE [Concomitant]
     Active Substance: AMLODIPINE BESYLATE
     Dosage: UNK

REACTIONS (4)
  - Upper gastrointestinal haemorrhage [Recovering/Resolving]
  - Anaemia [None]
  - Hypoglycaemia [None]
  - Melaena [Recovering/Resolving]

NARRATIVE: CASE EVENT DATE: 20210226
